FAERS Safety Report 14398063 (Version 1)
Quarter: 2018Q1

REPORT INFORMATION
  Report Type: Spontaneous
  Country: US (occurrence: US)
  Receive Date: 20180116
  Receipt Date: 20180116
  Transmission Date: 20180509
  Serious: No
  Sender: FDA-Public Use
  Company Number: US-ALLERGAN-1768757US

PATIENT
  Sex: Female

DRUGS (1)
  1. BOTOX [Suspect]
     Active Substance: ONABOTULINUMTOXINA
     Indication: HYPERTONIC BLADDER
     Dosage: UNK, SINGLE
     Route: 043
     Dates: start: 201709, end: 201709

REACTIONS (5)
  - Cystitis [Unknown]
  - Vulvovaginal burning sensation [Unknown]
  - Urine abnormality [Unknown]
  - Urinary tract infection [Unknown]
  - Vaginal odour [Unknown]
